FAERS Safety Report 12549693 (Version 1)
Quarter: 2016Q3

REPORT INFORMATION
  Report Type: Spontaneous
  Country: US (occurrence: US)
  Receive Date: 20160712
  Receipt Date: 20160712
  Transmission Date: 20161109
  Serious: Yes (Hospitalization, Other)
  Sender: FDA-Public Use
  Company Number: US-RICONPHARMA LLC-2016RIC00003

PATIENT
  Age: 28 Year
  Sex: Female

DRUGS (2)
  1. GRISEOFULVIN. [Suspect]
     Active Substance: GRISEOFULVIN
     Indication: ONYCHOMYCOSIS
     Dosage: 500 MG, 1X/DAY
     Route: 065
  2. IBUPROFEN. [Concomitant]
     Active Substance: IBUPROFEN
     Dosage: 200 MG, TWICE
     Route: 065

REACTIONS (9)
  - Rash maculo-papular [None]
  - Pain [None]
  - Acute kidney injury [Recovering/Resolving]
  - Thrombocytopenia [None]
  - Hypoalbuminaemia [Recovering/Resolving]
  - Tachycardia [None]
  - Glomerulosclerosis [Recovering/Resolving]
  - Diarrhoea [None]
  - Fatigue [None]
